FAERS Safety Report 9458739 (Version 1)
Quarter: 2013Q3

REPORT INFORMATION
  Report Type: Report from Study
  Country: US (occurrence: US)
  Receive Date: 20130814
  Receipt Date: 20130814
  Transmission Date: 20140515
  Serious: Yes (Other)
  Sender: FDA-Public Use
  Company Number: US-UCBSA-095229

PATIENT
  Sex: 0

DRUGS (1)
  1. CERTOLIZUMAB PEGOL [Suspect]

REACTIONS (1)
  - Lupus-like syndrome [Unknown]
